FAERS Safety Report 6794560-3 (Version None)
Quarter: 2010Q2

REPORT INFORMATION
  Report Type: 
  Country: None (occurrence: None)
  Receive Date: 20100625
  Receipt Date: 20100615
  Transmission Date: 20101027
  Serious: Yes (Other)
  Sender: FDA-Public Use
  Company Number: JP-PFIZER INC-2010074433

PATIENT
  Age: 87 Year
  Sex: Male

DRUGS (1)
  1. SELARA [Suspect]
     Dosage: 50 MG DAILY
     Route: 048

REACTIONS (2)
  - CORNEAL OEDEMA [None]
  - VISUAL IMPAIRMENT [None]
